FAERS Safety Report 14074788 (Version 4)
Quarter: 2017Q4

REPORT INFORMATION
  Report Type: Report from Study
  Country: CN (occurrence: CN)
  Receive Date: 20171011
  Receipt Date: 20171107
  Transmission Date: 20180321
  Serious: Yes (Death, Life-Threatening, Hospitalization)
  Sender: FDA-Public Use
  Company Number: CN-BAYER-2017-188566

PATIENT
  Sex: Female

DRUGS (1)
  1. STIVARGA [Suspect]
     Active Substance: REGORAFENIB
     Indication: COLORECTAL CANCER
     Dosage: 120 MG, UNK
     Route: 048
     Dates: start: 20170922, end: 20170930

REACTIONS (8)
  - Somnolence [Not Recovered/Not Resolved]
  - Colorectal cancer [Fatal]
  - Critical illness [Unknown]
  - Coma hepatic [Not Recovered/Not Resolved]
  - Asthenia [Not Recovered/Not Resolved]
  - Prosopagnosia [Not Recovered/Not Resolved]
  - Cerebral infarction [Unknown]
  - Amnesia [None]

NARRATIVE: CASE EVENT DATE: 2017
